FAERS Safety Report 12830991 (Version 1)
Quarter: 2016Q4

REPORT INFORMATION
  Report Type: Spontaneous
  Country: TW (occurrence: TW)
  Receive Date: 20161007
  Receipt Date: 20161007
  Transmission Date: 20170207
  Serious: Yes (Hospitalization)
  Sender: FDA-Public Use
  Company Number: TW-ASTRAZENECA-2016SF04114

PATIENT
  Age: 18354 Day
  Sex: Male
  Weight: 71 kg

DRUGS (2)
  1. BRILINTA [Suspect]
     Active Substance: TICAGRELOR
     Indication: ACUTE CORONARY SYNDROME
     Route: 048
     Dates: start: 20151125
  2. BOKEY [Concomitant]

REACTIONS (3)
  - Chest discomfort [Unknown]
  - Dyspnoea exertional [Unknown]
  - Angina pectoris [Unknown]

NARRATIVE: CASE EVENT DATE: 20151001
